FAERS Safety Report 24994388 (Version 1)
Quarter: 2025Q1

REPORT INFORMATION
  Report Type: Spontaneous
  Country: US (occurrence: None)
  Receive Date: 20250220
  Receipt Date: 20250220
  Transmission Date: 20250409
  Serious: Yes (Death)
  Sender: FDA-CTU
  Company Number: None

PATIENT

DRUGS (11)
  1. DEFERASIROX [Suspect]
     Active Substance: DEFERASIROX
     Dosage: OTHER QUANTITY : TAKE 6 TABLETS (2160 MG TOTAL) ;?FREQUENCY : DAILY;?
     Route: 048
     Dates: start: 20210325
  2. AZITHROMYCIN [Concomitant]
     Active Substance: AZITHROMYCIN
  3. BUSPIRONE  TAB 7.5MG [Concomitant]
  4. DEFERASIROX [Concomitant]
     Active Substance: DEFERASIROX
  5. ELIQUIS  TAB 5MG [Concomitant]
  6. ENOXAPARIN  INJ 80/0.SML [Concomitant]
  7. GABAPENTIN   CAP 300MG [Concomitant]
  8. HYDROXYZ HCL TAB 25MG [Concomitant]
  9. MELOXICAM  TAB 15MG [Concomitant]
  10. METHYLPRED  TAB4MG [Concomitant]
  11. MONTELUKAST SODIUM [Concomitant]
     Active Substance: MONTELUKAST SODIUM

REACTIONS (1)
  - Death [None]
